FAERS Safety Report 4359581-9 (Version None)
Quarter: 2004Q2

REPORT INFORMATION
  Report Type: 
  Country: None (occurrence: None)
  Receive Date: 20040518
  Receipt Date: 20040428
  Transmission Date: 20050107
  Serious: Yes (Hospitalization)
  Sender: FDA-Public Use
  Company Number: US-BRISTOL-MYERS SQUIBB COMPANY-12574166

PATIENT
  Age: 60 Year
  Sex: Female

DRUGS (6)
  1. ERBITUX [Suspect]
     Indication: COLON CANCER
     Dosage: INTERRUPTED ON 22-APR-2004 AND RESTARTED ON 05-MAY-2004.
     Route: 042
     Dates: start: 20040414, end: 20040414
  2. CPT-11 [Suspect]
     Indication: COLON CANCER
     Route: 042
     Dates: start: 20040414, end: 20040414
  3. ATIVAN [Concomitant]
  4. BENADRYL [Concomitant]
  5. DECADRON [Concomitant]
  6. ZANTAC [Concomitant]

REACTIONS (1)
  - ILEUS PARALYTIC [None]
